FAERS Safety Report 4416703-9 (Version None)
Quarter: 2004Q2

REPORT INFORMATION
  Report Type: 
  Country: None (occurrence: None)
  Receive Date: 20040630
  Receipt Date: 20040310
  Transmission Date: 20050107
  Serious: Yes (Hospitalization)
  Sender: FDA-Public Use
  Company Number: 04P-163-0252879-00

PATIENT
  Age: 59 Year
  Sex: Female
  Weight: 66.2252 kg

DRUGS (10)
  1. HUMIRA [Suspect]
     Indication: RHEUMATOID ARTHRITIS
     Dosage: 40 MG, 1 IN 2 WK, SUBCUTANEOUS
     Route: 058
     Dates: start: 20030701, end: 20031201
  2. HUMIRA [Suspect]
     Indication: RHEUMATOID ARTHRITIS
     Dosage: 40 MG, 1 IN 2 WK, SUBCUTANEOUS
     Route: 058
     Dates: start: 20040101
  3. METHOTREXATE [Concomitant]
  4. PLAQUINAL [Concomitant]
  5. SULTOPRIDE [Concomitant]
  6. ESTROPIPATE [Concomitant]
  7. FOLIC ACID [Concomitant]
  8. CALCIUM [Concomitant]
  9. MULTI-VITAMINS [Concomitant]
  10. TOCOPHEROL CONCENTRATE CAP [Concomitant]

REACTIONS (3)
  - CHOLELITHIASIS [None]
  - DIZZINESS [None]
  - INJECTION SITE BURNING [None]
